FAERS Safety Report 17322708 (Version 2)
Quarter: 2021Q1

REPORT INFORMATION
  Report Type: Other
  Country: US (occurrence: US)
  Receive Date: 20200127
  Receipt Date: 20210125
  Transmission Date: 20210419
  Serious: No
  Sender: FDA-Public Use
  Company Number: US-ACORDA-ACO_161898_2019

PATIENT
  Age: 62 Year
  Sex: Female

DRUGS (4)
  1. TECFIDERA [Suspect]
     Active Substance: DIMETHYL FUMARATE
     Indication: MULTIPLE SCLEROSIS
     Dosage: 240 MILLIGRAM, BID
     Route: 048
     Dates: start: 20180413
  2. DALFAMPRIDINE. [Suspect]
     Active Substance: DALFAMPRIDINE
     Indication: GAIT DISTURBANCE
     Dosage: 10 MILLIGRAM, BID
     Route: 048
  3. TYSABRI [Suspect]
     Active Substance: NATALIZUMAB
     Indication: MULTIPLE SCLEROSIS
     Dosage: UNK
     Route: 065
     Dates: start: 20170322, end: 20170601
  4. OCREVUS [Suspect]
     Active Substance: OCRELIZUMAB
     Indication: PRODUCT USED FOR UNKNOWN INDICATION
     Dosage: UNK
     Route: 065

REACTIONS (12)
  - Drug ineffective [Unknown]
  - Fatigue [Not Recovered/Not Resolved]
  - Pollakiuria [Recovered/Resolved]
  - Fall [Not Recovered/Not Resolved]
  - Micturition urgency [Recovered/Resolved]
  - Depression [Not Recovered/Not Resolved]
  - Emotional distress [Recovered/Resolved]
  - Upper limb fracture [Not Recovered/Not Resolved]
  - Therapy cessation [Unknown]
  - Condition aggravated [Not Recovered/Not Resolved]
  - Therapeutic response unexpected [Unknown]
  - Gait disturbance [Not Recovered/Not Resolved]

NARRATIVE: CASE EVENT DATE: 201607
